FAERS Safety Report 6076243-0 (Version None)
Quarter: 2009Q1

REPORT INFORMATION
  Report Type: 
  Country: None (occurrence: None)
  Receive Date: 20090209
  Receipt Date: 20090127
  Transmission Date: 20090719
  Serious: Yes (Other)
  Sender: FDA-Public Use
  Company Number: 2009AL000553

PATIENT
  Sex: Male

DRUGS (3)
  1. BACLOFEN [Suspect]
  2. OPIOIDS [Concomitant]
  3. GABAPENTIN [Concomitant]

REACTIONS (1)
  - LOSS OF CONSCIOUSNESS [None]
